FAERS Safety Report 4989353-3 (Version None)
Quarter: 2006Q2

REPORT INFORMATION
  Report Type: 
  Country: None (occurrence: None)
  Receive Date: 20060426
  Receipt Date: 20060417
  Transmission Date: 20061013
  Serious: Yes (Other)
  Sender: FDA-Public Use
  Company Number: 2006049950

PATIENT
  Age: 2 Year
  Sex: Female

DRUGS (1)
  1. LISTERINE (MENTHOL, METHYL SALICYLATE, EUCALYPTOL, THYMOL) [Suspect]
     Dosage: APPROXIMATELY 10 ML ONCE, ORAL
     Route: 048
     Dates: start: 20060407, end: 20060407

REACTIONS (3)
  - ACCIDENTAL DRUG INTAKE BY CHILD [None]
  - ERYTHEMA [None]
  - SOMNOLENCE [None]
